FAERS Safety Report 4699602-7 (Version None)
Quarter: 2005Q2

REPORT INFORMATION
  Report Type: 
  Country: None (occurrence: None)
  Receive Date: 20050623
  Receipt Date: 20050615
  Transmission Date: 20051028
  Serious: Yes (Death)
  Sender: FDA-Public Use
  Company Number: 2005089671

PATIENT
  Age: 60 Year
  Sex: Female

DRUGS (1)
  1. FRAGMIN [Suspect]
     Indication: THROMBOSIS PROPHYLAXIS
     Dosage: 5000 I.U. (2500 I.U., 2 IN 1 D),SUBCUTANEOUS
     Route: 058
     Dates: start: 20050519, end: 20050524

REACTIONS (1)
  - PULMONARY EMBOLISM [None]
